FAERS Safety Report 11159884 (Version 1)
Quarter: 2015Q2

REPORT INFORMATION
  Report Type: Spontaneous
  Country: US (occurrence: None)
  Receive Date: 20150602
  Receipt Date: 20150602
  Transmission Date: 20150821
  Serious: Yes (Life-Threatening, Other)
  Sender: FDA-Public Use
  Company Number: None

PATIENT
  Age: 74 Year
  Sex: Male

DRUGS (10)
  1. BOTOX [Suspect]
     Active Substance: ONABOTULINUMTOXINA
     Indication: INCONTINENCE
     Dates: start: 201501
  2. OXYGEN. [Concomitant]
     Active Substance: OXYGEN
  3. ALBUTEROL. [Concomitant]
     Active Substance: ALBUTEROL
  4. ATIVAN [Concomitant]
     Active Substance: LORAZEPAM
  5. VESICARE [Concomitant]
     Active Substance: SOLIFENACIN SUCCINATE
  6. NAPROXEN. [Concomitant]
     Active Substance: NAPROXEN
  7. AMITRIPTYLINE [Concomitant]
     Active Substance: AMITRIPTYLINE
  8. ADVAIR HFA [Concomitant]
     Active Substance: FLUTICASONE PROPIONATE\SALMETEROL XINAFOATE
  9. MIDODRINE [Concomitant]
     Active Substance: MIDODRINE
  10. TRAMADOL [Concomitant]
     Active Substance: TRAMADOL

REACTIONS (10)
  - Speech disorder [None]
  - Mobility decreased [None]
  - Dysphonia [None]
  - Dysphagia [None]
  - Dyspnoea [None]
  - Decreased appetite [None]
  - Weight decreased [None]
  - Urinary retention [None]
  - Muscular weakness [None]
  - Asthenia [None]

NARRATIVE: CASE EVENT DATE: 201501
